FAERS Safety Report 17071741 (Version 2)
Quarter: 2019Q4

REPORT INFORMATION
  Report Type: Spontaneous
  Country: US (occurrence: US)
  Receive Date: 20191125
  Receipt Date: 20191127
  Transmission Date: 20200122
  Serious: No
  Sender: FDA-Public Use
  Company Number: US-PFIZER INC-2019507437

PATIENT
  Age: 70 Year
  Sex: Male

DRUGS (2)
  1. INLYTA [Suspect]
     Active Substance: AXITINIB
     Dosage: 2.5 DF, 2X/DAY (5MG TABLET, 1/2 TABLET BY MOUTH TWICE A DAY)
     Route: 048
     Dates: start: 20191018
  2. INLYTA [Suspect]
     Active Substance: AXITINIB
     Indication: RENAL CELL CARCINOMA
     Dosage: 5 MG, UNK
     Dates: end: 20191016

REACTIONS (6)
  - Insomnia [Unknown]
  - Dysphonia [Unknown]
  - Blood pressure increased [Unknown]
  - Off label use [Unknown]
  - Decreased appetite [Unknown]
  - Wrong technique in product usage process [Unknown]

NARRATIVE: CASE EVENT DATE: 201910
